FAERS Safety Report 5623990-8 (Version None)
Quarter: 2008Q1

REPORT INFORMATION
  Report Type: 
  Country: None (occurrence: None)
  Receive Date: 20080208
  Receipt Date: 20080208
  Transmission Date: 20080703
  Serious: Yes (Hospitalization)
  Sender: FDA-Public Use
  Company Number: None

PATIENT
  Age: 5 Month
  Sex: Male

DRUGS (1)
  1. RILUTEK [Suspect]
     Indication: SPINAL MUSCULAR ATROPHY
     Dosage: 20MG TWO TIMES ADAY PO
     Route: 048
     Dates: start: 20050502, end: 20050831

REACTIONS (5)
  - ATELECTASIS [None]
  - NASAL CONGESTION [None]
  - NASOPHARYNGITIS [None]
  - OXYGEN SATURATION DECREASED [None]
  - UPPER RESPIRATORY TRACT CONGESTION [None]
